FAERS Safety Report 18517855 (Version 1)
Quarter: 2020Q4

REPORT INFORMATION
  Report Type: Spontaneous
  Country: FR (occurrence: FR)
  Receive Date: 20201118
  Receipt Date: 20201118
  Transmission Date: 20210114
  Serious: Yes (Death, Hospitalization)
  Sender: FDA-Public Use
  Company Number: NVSC2020FR306919

PATIENT
  Age: 76 Year
  Sex: Male
  Weight: 71 kg

DRUGS (9)
  1. FLAGYL [Suspect]
     Active Substance: METRONIDAZOLE\METRONIDAZOLE HYDROCHLORIDE
     Indication: PYELONEPHRITIS
     Dosage: 1500 MG,QD
     Route: 048
     Dates: start: 20200105, end: 20200110
  2. VANCOMYCIN [Suspect]
     Active Substance: VANCOMYCIN
     Indication: URINARY TRACT INFECTION
     Dosage: 1 G,QD
     Route: 042
     Dates: start: 20191231, end: 20200104
  3. COLCHICINE. [Concomitant]
     Active Substance: COLCHICINE
     Indication: PRODUCT USED FOR UNKNOWN INDICATION
     Dosage: UNK
     Route: 065
  4. GABAPENTINE [Concomitant]
     Active Substance: GABAPENTIN
     Indication: PRODUCT USED FOR UNKNOWN INDICATION
     Dosage: UNK
     Route: 065
  5. ALLOPURINOL. [Concomitant]
     Active Substance: ALLOPURINOL
     Indication: PRODUCT USED FOR UNKNOWN INDICATION
     Dosage: UNK
     Route: 065
  6. PRADAXA [Concomitant]
     Active Substance: DABIGATRAN ETEXILATE MESYLATE
     Indication: PRODUCT USED FOR UNKNOWN INDICATION
     Dosage: UNK
     Route: 065
  7. HUMALOG [Concomitant]
     Active Substance: INSULIN LISPRO
     Indication: PRODUCT USED FOR UNKNOWN INDICATION
     Dosage: UNK
     Route: 065
  8. CEFTRIAXON [Suspect]
     Active Substance: CEFTRIAXONE
     Indication: PYELONEPHRITIS
     Dosage: 1 G,QD
     Route: 030
     Dates: start: 20200105, end: 20200111
  9. ALFUZOSINE HCL [Concomitant]
     Active Substance: ALFUZOSIN HYDROCHLORIDE
     Indication: PRODUCT USED FOR UNKNOWN INDICATION
     Dosage: UNK
     Route: 065

REACTIONS (1)
  - Clostridium difficile colitis [Fatal]

NARRATIVE: CASE EVENT DATE: 20200125
